FAERS Safety Report 16849698 (Version 1)
Quarter: 2019Q3

REPORT INFORMATION
  Report Type: Report from Study
  Country: US (occurrence: US)
  Receive Date: 20190925
  Receipt Date: 20190925
  Transmission Date: 20191005
  Serious: Yes (Other)
  Sender: FDA-Public Use
  Company Number: US-TESARO-2018-TSO2556-US

PATIENT
  Sex: Female
  Weight: 55.33 kg

DRUGS (3)
  1. NIRAPARIB [Suspect]
     Active Substance: NIRAPARIB
     Dosage: 100 MG, QD TAKEN PM
     Dates: start: 20190104
  2. NIRAPARIB [Suspect]
     Active Substance: NIRAPARIB
     Indication: OVARIAN CANCER
     Dosage: 200 MG, QD
     Route: 048
     Dates: start: 201802
  3. NIRAPARIB [Suspect]
     Active Substance: NIRAPARIB
     Dosage: 100 MG, QD IN AM WITH BREAKFAST
     Route: 048

REACTIONS (6)
  - Fatigue [Recovered/Resolved]
  - Decreased appetite [Unknown]
  - Sleep disorder [Not Recovered/Not Resolved]
  - Platelet count decreased [Recovered/Resolved]
  - Cataract operation [Recovered/Resolved]
  - Platelet count decreased [Unknown]

NARRATIVE: CASE EVENT DATE: 2018
